FAERS Safety Report 24609321 (Version 1)
Quarter: 2024Q4

REPORT INFORMATION
  Report Type: Spontaneous
  Country: US (occurrence: US)
  Receive Date: 20241112
  Receipt Date: 20241112
  Transmission Date: 20250114
  Serious: No
  Sender: MERCK
  Company Number: US-009507513-2411USA002893

PATIENT
  Age: 84 Year
  Sex: Female

DRUGS (1)
  1. KEYTRUDA [Suspect]
     Active Substance: PEMBROLIZUMAB
     Indication: Small cell lung cancer
     Dosage: INFUSION EVERY THREE WEEKS
     Route: 042
     Dates: start: 2019, end: 202401

REACTIONS (7)
  - Urticaria [Not Recovered/Not Resolved]
  - Rhinorrhoea [Unknown]
  - Fatigue [Unknown]
  - Pain [Unknown]
  - Discomfort [Unknown]
  - Sensitive skin [Unknown]
  - Product use in unapproved indication [Unknown]

NARRATIVE: CASE EVENT DATE: 20240401
